FAERS Safety Report 19896406 (Version 5)
Quarter: 2023Q1

REPORT INFORMATION
  Report Type: Spontaneous
  Country: US (occurrence: US)
  Receive Date: 20210929
  Receipt Date: 20230224
  Transmission Date: 20230417
  Serious: No
  Sender: FDA-Public Use
  Company Number: US-PFIZER INC-202101145938

PATIENT
  Age: 81 Year
  Sex: Female

DRUGS (2)
  1. BOSULIF [Suspect]
     Active Substance: BOSUTINIB MONOHYDRATE
     Indication: Myeloid leukaemia
     Dosage: ONE EVERY MORNING WITH BREAKFAST
     Dates: end: 2022
  2. BOSULIF [Suspect]
     Active Substance: BOSUTINIB MONOHYDRATE
     Dosage: 500 MG
     Dates: start: 20220511

REACTIONS (4)
  - Overweight [Unknown]
  - Influenza [Unknown]
  - Nausea [Recovered/Resolved]
  - Insomnia [Unknown]
